FAERS Safety Report 13029167 (Version 1)
Quarter: 2016Q4

REPORT INFORMATION
  Report Type: Spontaneous
  Country: US (occurrence: US)
  Receive Date: 20161214
  Receipt Date: 20161214
  Transmission Date: 20170207
  Serious: Yes (Life-Threatening)
  Sender: FDA-Public Use
  Company Number: None

PATIENT
  Age: 53 Year
  Sex: Female
  Weight: 75.7 kg

DRUGS (1)
  1. REGORAFENIB BAYER [Suspect]
     Active Substance: REGORAFENIB
     Indication: COLON CANCER

REACTIONS (4)
  - Tachycardia [None]
  - Sepsis [None]
  - Hypotension [None]
  - Systemic inflammatory response syndrome [None]

NARRATIVE: CASE EVENT DATE: 20161208
